FAERS Safety Report 6312402-7 (Version None)
Quarter: 2009Q3

REPORT INFORMATION
  Report Type: 
  Country: None (occurrence: None)
  Receive Date: 20090817
  Receipt Date: 20090806
  Transmission Date: 20100115
  Serious: Yes (Death, Other)
  Sender: FDA-Public Use
  Company Number: JP-BAXTER-2009BH012592

PATIENT
  Age: 24 Year
  Sex: Male
  Weight: 66 kg

DRUGS (20)
  1. IFOMIDE [Suspect]
     Indication: TESTICULAR GERM CELL CANCER
     Route: 065
  2. IFOMIDE [Suspect]
     Route: 065
  3. ETOPOSIDE [Suspect]
     Indication: TESTICULAR GERM CELL CANCER
     Route: 065
  4. ETOPOSIDE [Suspect]
     Indication: METASTASES TO LUNG
     Route: 065
  5. ETOPOSIDE [Suspect]
     Route: 065
  6. ETOPOSIDE [Suspect]
     Route: 065
  7. ETOPOSIDE [Suspect]
     Route: 065
  8. ETOPOSIDE [Suspect]
     Route: 065
  9. ETOPOSIDE [Suspect]
     Indication: TESTICULAR GERM CELL CANCER
     Route: 065
  10. CISPLATIN [Suspect]
     Indication: METASTASES TO LUNG
     Route: 065
  11. CISPLATIN [Suspect]
     Route: 065
  12. CISPLATIN [Suspect]
     Route: 065
  13. CISPLATIN [Suspect]
     Route: 065
  14. CISPLATIN [Suspect]
     Route: 065
  15. PEPLOMYCIN SULFATE [Suspect]
     Indication: TESTICULAR GERM CELL CANCER
     Route: 065
  16. PEPLOMYCIN SULFATE [Suspect]
     Indication: METASTASES TO LUNG
     Route: 065
  17. PEPLOMYCIN SULFATE [Suspect]
     Route: 065
  18. PEPLOMYCIN SULFATE [Suspect]
     Route: 065
  19. CARBOPLATIN [Suspect]
     Indication: TESTICULAR GERM CELL CANCER
     Route: 065
  20. PACLITAXEL [Suspect]
     Indication: METASTASES TO LUNG
     Route: 065

REACTIONS (7)
  - ASCITES [None]
  - CEREBRAL INFARCTION [None]
  - METASTATIC NEOPLASM [None]
  - OEDEMA PERIPHERAL [None]
  - PLEURAL EFFUSION [None]
  - RESPIRATORY FAILURE [None]
  - VENA CAVA THROMBOSIS [None]
